FAERS Safety Report 5385325-8 (Version None)
Quarter: 2007Q3

REPORT INFORMATION
  Report Type: 
  Country: None (occurrence: None)
  Receive Date: 20070709
  Receipt Date: 20070626
  Transmission Date: 20080115
  Serious: Yes (Hospitalization)
  Sender: FDA-Public Use
  Company Number: B0477588A

PATIENT
  Age: 54 Year
  Sex: Male

DRUGS (3)
  1. RELENZA [Suspect]
     Indication: INFLUENZA
  2. RIMANTADINE HYDROCHLORIDE [Suspect]
     Indication: INFLUENZA
  3. AZITHROMYCIN [Suspect]
     Indication: INFLUENZA

REACTIONS (1)
  - LINEAR IGA DISEASE [None]
